FAERS Safety Report 10549370 (Version 1)
Quarter: 2014Q4

REPORT INFORMATION
  Report Type: Report from Study
  Country: None (occurrence: None)
  Receive Date: 20141016
  Receipt Date: 20141016
  Transmission Date: 20150529
  Serious: No
  Sender: FDA-Public Use
  Company Number: CABO-14004556

PATIENT
  Age: 68 Year
  Sex: Female

DRUGS (1)
  1. COMETRIQ [Suspect]
     Active Substance: CABOZANTINIB S-MALATE
     Indication: MALIGNANT NEOPLASM OF CHOROID
     Route: 048
     Dates: start: 20140725

REACTIONS (8)
  - Fatigue [None]
  - Asthenia [None]
  - Somnolence [None]
  - Off label use [None]
  - Abdominal discomfort [None]
  - Dysgeusia [None]
  - Muscle spasms [None]
  - Nausea [None]
